FAERS Safety Report 9247087 (Version 2)
Quarter: 2013Q2

REPORT INFORMATION
  Report Type: Spontaneous
  Country: US (occurrence: US)
  Receive Date: 20130423
  Receipt Date: 20130516
  Transmission Date: 20140414
  Serious: Yes (Hospitalization)
  Sender: FDA-Public Use
  Company Number: US-BIOGENIDEC-2013BI034841

PATIENT
  Age: 62 Year
  Sex: Female

DRUGS (4)
  1. AVONEX [Suspect]
     Indication: MULTIPLE SCLEROSIS
     Route: 030
     Dates: start: 20070129, end: 20070430
  2. AVONEX [Suspect]
     Indication: MULTIPLE SCLEROSIS
     Route: 030
     Dates: start: 20070713
  3. AVONEX [Suspect]
     Indication: MULTIPLE SCLEROSIS
     Route: 030
  4. BETASERON [Concomitant]
     Indication: MULTIPLE SCLEROSIS

REACTIONS (9)
  - Treatment noncompliance [Unknown]
  - Substance abuse [Unknown]
  - Multiple sclerosis relapse [Recovered/Resolved]
  - Memory impairment [Not Recovered/Not Resolved]
  - Distractibility [Not Recovered/Not Resolved]
  - Balance disorder [Not Recovered/Not Resolved]
  - Panic attack [Not Recovered/Not Resolved]
  - Fatigue [Not Recovered/Not Resolved]
  - Anxiety [Not Recovered/Not Resolved]
